FAERS Safety Report 18638547 (Version 2)
Quarter: 2021Q1

REPORT INFORMATION
  Report Type: Spontaneous
  Country: FR (occurrence: FR)
  Receive Date: 20201218
  Receipt Date: 20210104
  Transmission Date: 20210419
  Serious: Yes (Death, Hospitalization)
  Sender: FDA-Public Use
  Company Number: FR-PFIZER INC-2020325319

PATIENT
  Age: 68 Year
  Sex: Male
  Weight: 72 kg

DRUGS (3)
  1. SOLU?MEDROL [Suspect]
     Active Substance: METHYLPREDNISOLONE SODIUM SUCCINATE
     Indication: AUTOIMMUNE HEPATITIS
     Dosage: 80 MG, 1X/DAY
     Dates: start: 20200625, end: 20200708
  2. OPDIVO [Suspect]
     Active Substance: NIVOLUMAB
     Indication: BRONCHIAL CARCINOMA
     Dosage: 240 MG EVERY 2 WEEKS
     Route: 041
     Dates: start: 201806, end: 202002
  3. SOLUPRED [PREDNISOLONE METASULFOBENZOATE SODIUM] [Suspect]
     Active Substance: PREDNISOLONE SODIUM METAZOATE
     Indication: AUTOIMMUNE HEPATITIS
     Dosage: 80 MG, 1X/DAY
     Route: 048
     Dates: start: 20200708, end: 20200715

REACTIONS (4)
  - Product use in unapproved indication [Unknown]
  - Off label use [Unknown]
  - Cardio-respiratory arrest [Fatal]
  - Pancreatitis acute [Not Recovered/Not Resolved]

NARRATIVE: CASE EVENT DATE: 20200625
